FAERS Safety Report 5236448-5 (Version None)
Quarter: 2007Q1

REPORT INFORMATION
  Report Type: 
  Country: None (occurrence: None)
  Receive Date: 20070208
  Receipt Date: 20070123
  Transmission Date: 20070707
  Serious: Yes (Hospitalization)
  Sender: FDA-Public Use
  Company Number: 235941

PATIENT
  Age: 47 Year
  Sex: Female
  Weight: 59 kg

DRUGS (2)
  1. HERCEPTIN [Suspect]
     Indication: BREAST CANCER
     Dosage: 6 MG/KG, Q3W, INTRAVENOUS
     Route: 042
     Dates: start: 20050808, end: 20051219
  2. TAMOXIFEN CITRATE [Suspect]
     Indication: BREAST CANCER
     Dosage: 20 MG, QD, ORAL
     Route: 048
     Dates: start: 20050731

REACTIONS (2)
  - HYPOKINESIA [None]
  - MYOCARDIAL ISCHAEMIA [None]
